FAERS Safety Report 10234210 (Version 2)
Quarter: 2014Q2

REPORT INFORMATION
  Report Type: Spontaneous
  Country: US (occurrence: US)
  Receive Date: 20140612
  Receipt Date: 20140612
  Transmission Date: 20141212
  Serious: Yes (Hospitalization)
  Sender: FDA-Public Use
  Company Number: US-TARO-2014P1004364

PATIENT
  Age: 57 Year
  Sex: Female
  Weight: 72.58 kg

DRUGS (12)
  1. IMIQUIMOD CREAM 5% [Suspect]
     Indication: PRECANCEROUS SKIN LESION
     Dosage: 1/4 PACKET,QD
     Route: 061
     Dates: start: 20140304
  2. HYSSINOL (PREMIER RESEARCH LABS) [Concomitant]
     Dates: start: 201403
  3. ACAPLEX (PREMIER RESEARCH LABS) [Concomitant]
     Dosage: BID
     Dates: start: 201403
  4. NATURETHROID [Concomitant]
     Dates: start: 2012
  5. WOMEN^S MULTI [Concomitant]
  6. FISH OIL [Concomitant]
  7. CALCIUM [Concomitant]
  8. VITAMIN D3 [Concomitant]
  9. TURMERIC [Concomitant]
  10. THYROID SUPPORT SUPPLEMENTS [Concomitant]
  11. GLUTEN SLAM [Concomitant]
  12. PROBIOTICS [Concomitant]

REACTIONS (12)
  - Dehydration [Recovering/Resolving]
  - Dry mouth [Unknown]
  - Nausea [Recovered/Resolved]
  - Dizziness [Recovered/Resolved]
  - Fatigue [Recovering/Resolving]
  - Application site vesicles [Unknown]
  - Back pain [Recovered/Resolved]
  - Paraesthesia [Recovered/Resolved]
  - Hypoaesthesia [Recovered/Resolved]
  - Chest discomfort [Recovered/Resolved]
  - Myocardial necrosis marker increased [Unknown]
  - Cardiomegaly [Not Recovered/Not Resolved]
